FAERS Safety Report 9498955 (Version 1)
Quarter: 2013Q3

REPORT INFORMATION
  Report Type: Spontaneous
  Country: FR (occurrence: FR)
  Receive Date: 20130904
  Receipt Date: 20130904
  Transmission Date: 20140515
  Serious: Yes (Life-Threatening, Hospitalization)
  Sender: FDA-Public Use
  Company Number: FR-ELI_LILLY_AND_COMPANY-FR201308009463

PATIENT
  Age: 56 Year
  Sex: Male

DRUGS (8)
  1. EFIENT [Suspect]
     Indication: CORONARY ARTERY DISEASE
     Dosage: 10 MG, QD
     Route: 048
     Dates: start: 2011, end: 20130525
  2. KARDEGIC [Suspect]
     Indication: CORONARY ARTERY DISEASE
     Dosage: 75 MG, QD
     Route: 048
     Dates: start: 2011
  3. LOXEN [Concomitant]
  4. KREDEX [Concomitant]
  5. COVERSYL                           /00790702/ [Concomitant]
  6. CRESTOR [Concomitant]
  7. LANTUS [Concomitant]
  8. NOVONORM [Concomitant]

REACTIONS (3)
  - Anaemia [Recovered/Resolved]
  - Angina unstable [Recovered/Resolved]
  - Rectal haemorrhage [Recovered/Resolved]
